FAERS Safety Report 6816136-1 (Version None)
Quarter: 2010Q3

REPORT INFORMATION
  Report Type: 
  Country: None (occurrence: None)
  Receive Date: 20100702
  Receipt Date: 20100702
  Transmission Date: 20110219
  Serious: Yes (Other)
  Sender: FDA-Public Use
  Company Number: None

PATIENT
  Sex: Female
  Weight: 48.9885 kg

DRUGS (3)
  1. IMIQUIMOB [Suspect]
     Indication: SKIN PAPILLOMA
     Dosage: SINGLE PACKETS 2-3 TIMES A WEEK TOP
     Route: 061
     Dates: start: 20100522, end: 20100604
  2. IMIQUIMOB [Suspect]
     Indication: SKIN PAPILLOMA
     Dosage: SINGLE PACKETS 2-3 TIMES A WEEK TOP
     Route: 061
     Dates: start: 20100604, end: 20100604
  3. ALDARA [Concomitant]

REACTIONS (11)
  - APPLICATION SITE PAIN [None]
  - APPLICATION SITE PRURITUS [None]
  - ASTHMA [None]
  - CYANOSIS [None]
  - DYSPNOEA [None]
  - FATIGUE [None]
  - INFLUENZA LIKE ILLNESS [None]
  - PYREXIA [None]
  - SINUSITIS [None]
  - ULCER [None]
  - UPPER RESPIRATORY TRACT INFECTION [None]
